FAERS Safety Report 6457638-X (Version None)
Quarter: 2009Q4

REPORT INFORMATION
  Report Type: 
  Country: None (occurrence: None)
  Receive Date: 20091125
  Receipt Date: 20091116
  Transmission Date: 20100525
  Serious: Yes (Other)
  Sender: FDA-Public Use
  Company Number: AT-ABBOTT-09P-009-0608708-00

PATIENT
  Sex: Female
  Weight: 51 kg

DRUGS (2)
  1. HUMIRA [Suspect]
     Indication: PSORIASIS
     Route: 058
     Dates: start: 20080416, end: 20090408
  2. HUMIRA [Suspect]
     Indication: DERMATITIS EXFOLIATIVE

REACTIONS (2)
  - KERATITIS [None]
  - NEOVASCULARISATION [None]
